FAERS Safety Report 7538711-1 (Version None)
Quarter: 2011Q2

REPORT INFORMATION
  Report Type: 
  Country: None (occurrence: None)
  Receive Date: 20110610
  Receipt Date: 20110608
  Transmission Date: 20111010
  Serious: No
  Sender: FDA-Public Use
  Company Number: US-PFIZER INC-2011125461

PATIENT
  Sex: Female
  Weight: 77.098 kg

DRUGS (4)
  1. CHANTIX [Suspect]
     Dosage: 1 MG, 2X/DAY
  2. MOTRIN [Concomitant]
     Dosage: UNK
  3. TOPIRAMATE [Concomitant]
     Indication: MIGRAINE
     Dosage: UNK
  4. CHANTIX [Suspect]
     Indication: SMOKING CESSATION THERAPY
     Dosage: 0.5 MG, 1X/DAY
     Route: 048

REACTIONS (3)
  - MALAISE [None]
  - VOMITING [None]
  - DECREASED APPETITE [None]
